FAERS Safety Report 5553573-X (Version None)
Quarter: 2007Q4

REPORT INFORMATION
  Report Type: 
  Country: None (occurrence: None)
  Receive Date: 20071213
  Receipt Date: 20071115
  Transmission Date: 20080405
  Serious: No
  Sender: FDA-Public Use
  Company Number: US-BAYER-200715367NA

PATIENT
  Age: 39 Year
  Sex: Female
  Weight: 54 kg

DRUGS (2)
  1. MAGNEVIST [Suspect]
     Indication: NUCLEAR MAGNETIC RESONANCE IMAGING
     Dosage: UNIT DOSE: 11 ML
     Route: 042
     Dates: start: 20071114, end: 20071114
  2. LIPITOR [Concomitant]

REACTIONS (2)
  - NASAL CONGESTION [None]
  - SNEEZING [None]
